FAERS Safety Report 8231103-1 (Version None)
Quarter: 2012Q1

REPORT INFORMATION
  Report Type: 
  Country: None (occurrence: None)
  Receive Date: 20120322
  Receipt Date: 20120322
  Transmission Date: 20120608
  Serious: Yes (Other)
  Sender: FDA-Public Use
  Company Number: None

PATIENT
  Sex: Female
  Weight: 52.163 kg

DRUGS (12)
  1. OSTEOPRIME CALCIUM/MINERAL SUPPLEMENTS [Concomitant]
     Route: 048
  2. PROBIOTIC, [Concomitant]
  3. FLAXSEED OIL CAPSULE [Concomitant]
     Route: 048
  4. CLONAZEPAM [Concomitant]
     Route: 048
  5. MULTIVITAMIN WITH IRON [Concomitant]
     Route: 048
  6. ASCORBIC ACID [Concomitant]
  7. MAGNESIUM GLYCINATE [Concomitant]
  8. FISH OIL [Concomitant]
     Route: 048
  9. EFFEXOR XR [Suspect]
     Indication: IRRITABLE BOWEL SYNDROME
     Dosage: 75MG
     Route: 048
     Dates: start: 20031001, end: 20120321
  10. EFFEXOR XR [Suspect]
     Indication: DEPRESSION
     Dosage: 75MG
     Route: 048
     Dates: start: 20031001, end: 20120321
  11. EFFEXOR XR [Suspect]
     Indication: FIBROMYALGIA
     Dosage: 75MG
     Route: 048
     Dates: start: 20031001, end: 20120321
  12. CRANBERRY CAPSULES [Concomitant]

REACTIONS (14)
  - PARAESTHESIA [None]
  - INCORRECT STORAGE OF DRUG [None]
  - PRODUCT EXPIRATION DATE ISSUE [None]
  - IMPAIRED GASTRIC EMPTYING [None]
  - GASTROINTESTINAL PAIN [None]
  - PRODUCT COUNTERFEIT [None]
  - DIARRHOEA [None]
  - ABDOMINAL DISTENSION [None]
  - PRODUCT QUALITY ISSUE [None]
  - WITHDRAWAL SYNDROME [None]
  - GASTROOESOPHAGEAL REFLUX DISEASE [None]
  - DECREASED APPETITE [None]
  - INSOMNIA [None]
  - MUSCULOSKELETAL STIFFNESS [None]
